FAERS Safety Report 22648741 (Version 1)
Quarter: 2023Q2

REPORT INFORMATION
  Report Type: Spontaneous
  Country: JP (occurrence: JP)
  Receive Date: 20230628
  Receipt Date: 20230628
  Transmission Date: 20230721
  Serious: Yes (Other)
  Sender: FDA-Public Use
  Company Number: JP-BAYER-2023A080094

PATIENT
  Age: 88 Year

DRUGS (1)
  1. EYLEA [Suspect]
     Active Substance: AFLIBERCEPT
     Indication: Age-related macular degeneration
     Dosage: 30 TIMES, 40 MG/ML, SOLUTION FOR INJECTION IN PRE-FILLED SYRINGE
     Route: 031

REACTIONS (2)
  - Visual acuity reduced [Recovered/Resolved]
  - Retinal artery occlusion [Recovered/Resolved]
